FAERS Safety Report 7498482-4 (Version None)
Quarter: 2011Q2

REPORT INFORMATION
  Report Type: 
  Country: None (occurrence: None)
  Receive Date: 20110516
  Receipt Date: 20110509
  Transmission Date: 20111010
  Serious: Yes (Other)
  Sender: FDA-Public Use
  Company Number: 2011SP016758

PATIENT
  Age: 80 Year
  Sex: Male

DRUGS (2)
  1. MIRTAZAPINE [Suspect]
     Indication: DEPRESSION
     Dates: start: 20090101, end: 20110406
  2. CITALOPRAM HYDROBROMIDE [Suspect]
     Indication: DEPRESSION
     Dates: start: 20110406

REACTIONS (3)
  - NO THERAPEUTIC RESPONSE [None]
  - DRUG WITHDRAWAL SYNDROME [None]
  - ABNORMAL BEHAVIOUR [None]
